FAERS Safety Report 7151558-3 (Version None)
Quarter: 2010Q4

REPORT INFORMATION
  Report Type: 
  Country: None (occurrence: None)
  Receive Date: 20101210
  Receipt Date: 20101130
  Transmission Date: 20110411
  Serious: Yes (Hospitalization)
  Sender: FDA-Public Use
  Company Number: US-JNJFOC-20101200868

PATIENT
  Age: 35 Year
  Sex: Female
  Weight: 60.8 kg

DRUGS (5)
  1. EXTRA STRENGTH TYLENOL PM [Suspect]
     Indication: SLEEP DISORDER THERAPY
     Dosage: 2-4 PILLS EVERY NIGHT FOR SLEEP FOR MORE THAN 2 YEARS.
     Route: 048
  2. EXTRA STRENGTH TYLENOL PM [Suspect]
     Dosage: TOOK A ^HANDFUL^ OF PILLS
     Route: 048
  3. METHYLPHENIDATE [Concomitant]
     Indication: ATTENTION DEFICIT/HYPERACTIVITY DISORDER
     Dosage: TAKES OCCASIONAL DOSES
  4. COCAINE [Concomitant]
  5. HYDROCODONE [Concomitant]

REACTIONS (16)
  - ALANINE AMINOTRANSFERASE INCREASED [None]
  - ASPARTATE AMINOTRANSFERASE INCREASED [None]
  - BLOOD BILIRUBIN INCREASED [None]
  - DRUG SCREEN POSITIVE [None]
  - FALL [None]
  - HYPOTENSION [None]
  - HYPOXIA [None]
  - INTENTIONAL OVERDOSE [None]
  - ISCHAEMIC HEPATITIS [None]
  - MEMORY IMPAIRMENT [None]
  - NAUSEA [None]
  - PROTHROMBIN TIME PROLONGED [None]
  - SEDATION [None]
  - TRANSAMINASES INCREASED [None]
  - URINARY RETENTION [None]
  - VOMITING [None]
